FAERS Safety Report 15719695 (Version 3)
Quarter: 2019Q1

REPORT INFORMATION
  Report Type: Spontaneous
  Country: US (occurrence: US)
  Receive Date: 20181213
  Receipt Date: 20190329
  Transmission Date: 20190417
  Serious: Yes (Other)
  Sender: FDA-Public Use
  Company Number: US-BRISTOL-MYERS SQUIBB COMPANY-BMS-2018-117425

PATIENT
  Sex: Female

DRUGS (1)
  1. OPDIVO [Suspect]
     Active Substance: NIVOLUMAB
     Indication: THROAT CANCER
     Dosage: UNAVAILABLE
     Route: 065

REACTIONS (2)
  - Blood sodium decreased [Unknown]
  - Diarrhoea [Recovered/Resolved]
